FAERS Safety Report 5367507-4 (Version None)
Quarter: 2007Q2

REPORT INFORMATION
  Report Type: 
  Country: None (occurrence: None)
  Receive Date: 20070622
  Receipt Date: 20060927
  Transmission Date: 20071010
  Serious: No
  Sender: FDA-Public Use
  Company Number: US-ASTRAZENECA-2006UW18777

PATIENT
  Age: 77 Year
  Sex: Female
  Weight: 72.6 kg

DRUGS (9)
  1. PULMICORT RESPULES [Suspect]
     Indication: CHRONIC OBSTRUCTIVE PULMONARY DISEASE
     Route: 055
     Dates: start: 20050101
  2. PULMICORT RESPULES [Suspect]
     Indication: ASTHMA
     Route: 055
     Dates: start: 20050101
  3. PULMICORT RESPULES [Suspect]
     Route: 055
     Dates: start: 20060101
  4. PULMICORT RESPULES [Suspect]
     Route: 055
     Dates: start: 20060101
  5. ADVAIR DISKUS 100/50 [Concomitant]
  6. ALBUTEROL [Concomitant]
  7. LANOXIN [Concomitant]
  8. DILTIAZEM [Concomitant]
  9. THEOPHYLLINE [Concomitant]

REACTIONS (2)
  - DRUG EFFECT DECREASED [None]
  - DYSPNOEA [None]
